FAERS Safety Report 24437736 (Version 1)
Quarter: 2024Q4

REPORT INFORMATION
  Report Type: Report from Study
  Country: CA (occurrence: CA)
  Receive Date: 20241015
  Receipt Date: 20241015
  Transmission Date: 20250115
  Serious: Yes (Other)
  Sender: SANDOZ
  Company Number: CA-002147023-NVSC2022CA244134

PATIENT
  Age: 80 Year
  Sex: Female

DRUGS (3)
  1. HYRIMOZ [Suspect]
     Active Substance: ADALIMUMAB-ADAZ
     Indication: Rheumatoid arthritis
     Dosage: 40 MG, Q2W
     Route: 058
     Dates: start: 20220916
  2. HYRIMOZ [Suspect]
     Active Substance: ADALIMUMAB-ADAZ
     Dosage: 40 MG Q 2 WEEKS;EVERY TWO WEEKS
     Route: 058
     Dates: start: 20220916
  3. HYRIMOZ [Suspect]
     Active Substance: ADALIMUMAB-ADAZ
     Dosage: UNK
     Route: 065
     Dates: start: 20221015

REACTIONS (6)
  - Dependence [Unknown]
  - Arthralgia [Recovering/Resolving]
  - Synovitis [Unknown]
  - Varicose vein [Unknown]
  - Peripheral swelling [Unknown]
  - Joint dislocation [Unknown]
